FAERS Safety Report 11704180 (Version 3)
Quarter: 2015Q4

REPORT INFORMATION
  Report Type: Spontaneous
  Country: BR (occurrence: BR)
  Receive Date: 20151106
  Receipt Date: 20151124
  Transmission Date: 20160304
  Serious: Yes (Death)
  Sender: FDA-Public Use
  Company Number: BR-SA-2015SA176066

PATIENT

DRUGS (1)
  1. ARAVA [Suspect]
     Active Substance: LEFLUNOMIDE
     Route: 065

REACTIONS (2)
  - Death [Fatal]
  - Unevaluable event [Fatal]
